FAERS Safety Report 18794299 (Version 1)
Quarter: 2021Q1

REPORT INFORMATION
  Report Type: Spontaneous
  Country: US (occurrence: US)
  Receive Date: 20210127
  Receipt Date: 20210127
  Transmission Date: 20210419
  Serious: Yes (Other)
  Sender: FDA-Public Use
  Company Number: None

PATIENT
  Sex: Female

DRUGS (1)
  1. EPINEPHRINE INJECTION AUTO INJECTOR [Suspect]
     Active Substance: EPINEPHRINE HYDROCHLORIDE

REACTIONS (2)
  - Injury associated with device [None]
  - Wrong technique in product usage process [None]

NARRATIVE: CASE EVENT DATE: 20210122
